FAERS Safety Report 8020812-5 (Version None)
Quarter: 2012Q1

REPORT INFORMATION
  Report Type: 
  Country: None (occurrence: None)
  Receive Date: 20120104
  Receipt Date: 20111227
  Transmission Date: 20120608
  Serious: No
  Sender: FDA-Public Use
  Company Number: US-BIOGENIDEC-2011BI048998

PATIENT
  Age: 54 Year
  Sex: Female

DRUGS (1)
  1. TYSABRI [Suspect]
     Indication: MULTIPLE SCLEROSIS
     Route: 042
     Dates: start: 20100209, end: 20100622

REACTIONS (6)
  - NEUROPATHY PERIPHERAL [None]
  - INSOMNIA [None]
  - DEPRESSION [None]
  - FACIAL PAIN [None]
  - BLOOD PRESSURE ABNORMAL [None]
  - ABDOMINAL DISCOMFORT [None]
